FAERS Safety Report 14660877 (Version 1)
Quarter: 2018Q1

REPORT INFORMATION
  Report Type: Spontaneous
  Country: JP (occurrence: JP)
  Receive Date: 20180320
  Receipt Date: 20180320
  Transmission Date: 20180509
  Serious: Yes (Other)
  Sender: FDA-Public Use
  Company Number: JP-JNJFOC-20180233276

PATIENT
  Sex: Female

DRUGS (1)
  1. ITRIZOLE [Suspect]
     Active Substance: ITRACONAZOLE
     Indication: PRODUCT USED FOR UNKNOWN INDICATION
     Route: 048

REACTIONS (2)
  - Aplastic anaemia [Not Recovered/Not Resolved]
  - Helicobacter test positive [Not Recovered/Not Resolved]
